FAERS Safety Report 21452500 (Version 2)
Quarter: 2022Q4

REPORT INFORMATION
  Report Type: Report from Study
  Country: GB (occurrence: None)
  Receive Date: 20221013
  Receipt Date: 20221026
  Transmission Date: 20230113
  Serious: Yes (Hospitalization)
  Sender: FDA-Public Use
  Company Number: GB-ROCHE-3110195

PATIENT
  Age: 63 Year
  Sex: Male
  Weight: 69.8 kg

DRUGS (23)
  1. FORIMTAMIG? [Suspect]
     Active Substance: FORIMTAMIG
     Indication: Plasma cell myeloma
     Dosage: ON 10/MAY/2022, RECEIVED MOST RECENT DOSE OF STUDY DRUG 2.4 MG PRIOR TO AE/SAE, ON 31/MAY/2022, RECE
     Route: 058
     Dates: start: 20220413
  2. TOCILIZUMAB [Suspect]
     Active Substance: TOCILIZUMAB
     Indication: Plasma cell myeloma
     Dosage: START DATE OF MOST RECENT DOSE OF STUDY DRUG PRIOR TO SAE 23-APR-2022 3:00 AM?END DATE OF MOST RECEN
     Route: 042
     Dates: start: 20220423
  3. ACETAMINOPHEN [Concomitant]
     Active Substance: ACETAMINOPHEN
     Dosage: MEDICATION START AND END DATE: 31/MAY/2022
     Route: 048
     Dates: start: 20220510, end: 20220510
  4. ACETAMINOPHEN [Concomitant]
     Active Substance: ACETAMINOPHEN
     Dosage: MEDICATION START AND END DATE: 31/MAY/2022
     Route: 048
     Dates: start: 20220621, end: 20220621
  5. ACETAMINOPHEN [Concomitant]
     Active Substance: ACETAMINOPHEN
     Dosage: MEDICATION START AND END DATE: 31/MAY/2022
     Route: 048
     Dates: start: 20220531, end: 20220531
  6. CLOBETASOL [Concomitant]
     Active Substance: CLOBETASOL
     Indication: Rash maculo-papular
     Route: 061
     Dates: start: 20220425
  7. PREDNISOLONE [Concomitant]
     Active Substance: PREDNISOLONE
     Indication: Rash maculo-papular
     Route: 048
     Dates: start: 20220429, end: 20220503
  8. ARTIFICIAL SALIVA [Concomitant]
     Indication: Dry mouth
     Route: 048
     Dates: start: 20220429
  9. DEXAMETHASONE [Concomitant]
     Active Substance: DEXAMETHASONE
     Route: 042
     Dates: start: 20220510, end: 20220510
  10. DEXAMETHASONE [Concomitant]
     Active Substance: DEXAMETHASONE
     Route: 042
     Dates: start: 20220621, end: 20220621
  11. CHLORPHENIRAMINE MALEATE [Concomitant]
     Active Substance: CHLORPHENIRAMINE MALEATE
     Route: 048
     Dates: start: 20220510, end: 20220510
  12. CHLORPHENIRAMINE MALEATE [Concomitant]
     Active Substance: CHLORPHENIRAMINE MALEATE
     Route: 048
     Dates: start: 20220621, end: 20220621
  13. CHLORPHENIRAMINE MALEATE [Concomitant]
     Active Substance: CHLORPHENIRAMINE MALEATE
     Route: 048
     Dates: start: 20220531, end: 20220531
  14. OMEPRAZOLE [Concomitant]
     Active Substance: OMEPRAZOLE
     Route: 048
     Dates: start: 202203
  15. ACYCLOVIR [Concomitant]
     Active Substance: ACYCLOVIR
     Route: 048
     Dates: start: 2021
  16. APIXABAN [Concomitant]
     Active Substance: APIXABAN
     Indication: Embolism venous
     Route: 048
     Dates: start: 2021
  17. GABAPENTIN [Concomitant]
     Active Substance: GABAPENTIN
     Indication: Pain management
     Route: 048
     Dates: start: 202203
  18. GABAPENTIN [Concomitant]
     Active Substance: GABAPENTIN
     Route: 048
     Dates: start: 202204
  19. ZOMETA [Concomitant]
     Active Substance: ZOLEDRONIC ACID
     Route: 042
     Dates: start: 2021
  20. DOCUSATE [Concomitant]
     Active Substance: DOCUSATE
     Indication: Constipation
     Route: 048
     Dates: start: 2021
  21. SENNA [Concomitant]
     Active Substance: SENNA LEAF\SENNOSIDES\SENNOSIDES A AND B
     Indication: Constipation
     Route: 048
     Dates: start: 2021
  22. DIHYDROCODEINE [Concomitant]
     Active Substance: DIHYDROCODEINE
     Indication: Pain management
     Route: 048
     Dates: start: 202204
  23. TOCILIZUMAB [Concomitant]
     Active Substance: TOCILIZUMAB
     Route: 042

REACTIONS (2)
  - Tumour pain [Not Recovered/Not Resolved]
  - Cytokine release syndrome [Not Recovered/Not Resolved]

NARRATIVE: CASE EVENT DATE: 20220601
